FAERS Safety Report 5247640-8 (Version None)
Quarter: 2007Q1

REPORT INFORMATION
  Report Type: 
  Country: None (occurrence: None)
  Receive Date: 20070227
  Receipt Date: 20070215
  Transmission Date: 20070707
  Serious: Yes (Other)
  Sender: FDA-Public Use
  Company Number: US-NOVOPROD-251786

PATIENT
  Sex: Male
  Weight: 75 kg

DRUGS (4)
  1. NOVOSEVEN [Suspect]
     Indication: HAEMOPHILIA A WITH ANTI FACTOR VIII
     Dosage: 208 UG/KG, TID
     Route: 042
     Dates: start: 20060222, end: 20060317
  2. NOVOSEVEN [Suspect]
     Indication: KNEE ARTHROPLASTY
     Dosage: 208 UG/KG, QD, THREE TIMES A WEEK
     Route: 042
     Dates: start: 20060317, end: 20060413
  3. CYCLOKAPRON [Concomitant]
     Dosage: UNKNOWN
     Dates: start: 20060222
  4. OXYCONTIN [Concomitant]
     Indication: PAIN
     Dosage: UNK, UNK

REACTIONS (1)
  - DEEP VEIN THROMBOSIS [None]
